FAERS Safety Report 16842800 (Version 1)
Quarter: 2019Q3

REPORT INFORMATION
  Report Type: Spontaneous
  Country: IN (occurrence: IN)
  Receive Date: 20190924
  Receipt Date: 20190924
  Transmission Date: 20191005
  Serious: Yes (Other)
  Sender: FDA-Public Use
  Company Number: IN-AUROBINDO-AUR-APL-2019-061342

PATIENT
  Age: 51 Year
  Sex: Female

DRUGS (3)
  1. LAMIVUDINE. [Suspect]
     Active Substance: LAMIVUDINE
     Indication: PSYCHOTHERAPY
     Dosage: UNK
     Route: 065
  2. NEVIRAPINE. [Suspect]
     Active Substance: NEVIRAPINE
     Indication: PSYCHOTHERAPY
     Dosage: UNK
     Route: 065
  3. STAVUDINE. [Suspect]
     Active Substance: STAVUDINE
     Indication: PSYCHOTHERAPY
     Dosage: UNK
     Route: 065

REACTIONS (16)
  - Hepatotoxicity [Unknown]
  - Pulmonary tuberculosis [Unknown]
  - Jaundice [Unknown]
  - Blood bilirubin increased [Unknown]
  - Seizure [Unknown]
  - Alanine aminotransferase increased [Unknown]
  - Weight decreased [Unknown]
  - Tuberculoma of central nervous system [Unknown]
  - Pyrexia [Unknown]
  - Immune reconstitution inflammatory syndrome associated tuberculosis [Unknown]
  - Pruritus generalised [Unknown]
  - Night sweats [Unknown]
  - Aspartate aminotransferase increased [Unknown]
  - Abdominal pain [Unknown]
  - Lymphadenopathy [Unknown]
  - Cough [Unknown]
